FAERS Safety Report 24205287 (Version 3)
Quarter: 2024Q3

REPORT INFORMATION
  Report Type: Report from Study
  Country: US (occurrence: US)
  Receive Date: 20240813
  Receipt Date: 20240918
  Transmission Date: 20241017
  Serious: Yes (Hospitalization, Other)
  Sender: ABBVIE
  Company Number: US-ABBVIE-5875713

PATIENT
  Age: 19 Year
  Sex: Male
  Weight: 119 kg

DRUGS (4)
  1. RINVOQ [Suspect]
     Active Substance: UPADACITINIB
     Indication: Dermatitis atopic
     Dosage: 15 MILLIGRAM
     Route: 048
     Dates: start: 20221104, end: 20240708
  2. RINVOQ [Suspect]
     Active Substance: UPADACITINIB
     Indication: Dermatitis atopic
     Dosage: 15 MILLIGRAM
     Route: 048
     Dates: start: 20240728
  3. TYLENOL [Concomitant]
     Active Substance: ACETAMINOPHEN
     Indication: Pain
     Dosage: TIME INTERVAL: AS NECESSARY
  4. CLARITIN [Concomitant]
     Active Substance: LORATADINE
     Indication: Multiple allergies

REACTIONS (4)
  - Road traffic accident [Recovered/Resolved]
  - Cervical vertebral fracture [Recovering/Resolving]
  - Neck pain [Recovering/Resolving]
  - Arthralgia [Recovering/Resolving]

NARRATIVE: CASE EVENT DATE: 20240708
